FAERS Safety Report 20500411 (Version 5)
Quarter: 2023Q4

REPORT INFORMATION
  Report Type: Other
  Country: DE (occurrence: None)
  Receive Date: 20220222
  Receipt Date: 20231031
  Transmission Date: 20240109
  Serious: No
  Sender: FDA-Public Use
  Company Number: DE-ROCHE-2563969

PATIENT
  Age: 40 Year
  Sex: Male

DRUGS (11)
  1. OCREVUS [Suspect]
     Active Substance: OCRELIZUMAB
     Indication: Relapsing-remitting multiple sclerosis
     Dosage: 5 TH MAINTENANCE DOSE ON 10/NOV/2022
     Route: 042
     Dates: start: 20200305
  2. OCREVUS [Suspect]
     Active Substance: OCRELIZUMAB
     Route: 042
     Dates: start: 20200324
  3. OCREVUS [Suspect]
     Active Substance: OCRELIZUMAB
     Route: 042
     Dates: start: 20201006
  4. OCREVUS [Suspect]
     Active Substance: OCRELIZUMAB
     Route: 042
     Dates: start: 20210406
  5. OCREVUS [Suspect]
     Active Substance: OCRELIZUMAB
     Route: 042
     Dates: start: 20221110
  6. NABIXIMOLS [Concomitant]
     Active Substance: NABIXIMOLS
  7. VALDOXAN [Concomitant]
     Active Substance: AGOMELATINE
  8. DIPHTHERIA TOXOID NOS [Concomitant]
     Active Substance: CORYNEBACTERIUM DIPHTHERIAE TOXOID ANTIGEN (FORMALDEHYDE INACTIVATED)
     Dates: start: 20200527
  9. POLIOMYELITIS VACCINE NOS [Concomitant]
     Active Substance: POLIOMYELITIS VACCINE
     Dates: start: 20200527
  10. PERTUSSIS VACCINE [Concomitant]
     Active Substance: PERTUSSIS VACCINE
     Dates: start: 20200527
  11. TETANUS TOXOID ADSORBED (VACCINE) [Concomitant]
     Active Substance: CLOSTRIDIUM TETANI TOXOID ANTIGEN (FORMALDEHYDE INACTIVATED)
     Dates: start: 20200527

REACTIONS (8)
  - Headache [Recovered/Resolved]
  - Limb discomfort [Recovered/Resolved]
  - Fatigue [Recovered/Resolved]
  - COVID-19 [Recovered/Resolved]
  - Nasopharyngitis [Recovered/Resolved]
  - Cystitis noninfective [Recovered/Resolved]
  - Pyrexia [Recovered/Resolved]
  - Diarrhoea [Recovered/Resolved]

NARRATIVE: CASE EVENT DATE: 20200305
